FAERS Safety Report 15042384 (Version 4)
Quarter: 2018Q3

REPORT INFORMATION
  Report Type: Spontaneous
  Country: US (occurrence: US)
  Receive Date: 20180621
  Receipt Date: 20180824
  Transmission Date: 20181010
  Serious: Yes (Other)
  Sender: FDA-Public Use
  Company Number: US-BAYER-2018-112927

PATIENT
  Age: 18 Year
  Sex: Female

DRUGS (2)
  1. MIRENA [Suspect]
     Active Substance: LEVONORGESTREL
     Indication: CONTRACEPTION
     Dosage: 20 MCG/24HR, CONT
     Route: 015
     Dates: start: 20180521, end: 20180521
  2. MIRENA [Suspect]
     Active Substance: LEVONORGESTREL
     Indication: CONTRACEPTION
     Dosage: 20 MCG/24HR, CONT
     Route: 015
     Dates: start: 20180521, end: 20180523

REACTIONS (9)
  - Pain [None]
  - Device deployment issue [None]
  - Pelvic discomfort [None]
  - Cervix erythema [None]
  - Dizziness [None]
  - Vaginal discharge [None]
  - Abdominal pain lower [None]
  - Vaginal haemorrhage [None]
  - Embedded device [None]

NARRATIVE: CASE EVENT DATE: 20180521
